FAERS Safety Report 5107169-4 (Version None)
Quarter: 2006Q3

REPORT INFORMATION
  Report Type: 
  Country: None (occurrence: None)
  Receive Date: 20060731
  Receipt Date: 20060410
  Transmission Date: 20061208
  Serious: No
  Sender: FDA-Public Use
  Company Number: 2006PV011810

PATIENT
  Age: 54 Year
  Sex: Female
  Weight: 97.5234 kg

DRUGS (13)
  1. BYETTA [Suspect]
     Indication: DIABETES MELLITUS NON-INSULIN-DEPENDENT
     Dosage: SEE IMAGE
     Route: 058
     Dates: start: 20050801, end: 20050901
  2. BYETTA [Suspect]
     Indication: DIABETES MELLITUS NON-INSULIN-DEPENDENT
     Dosage: SEE IMAGE
     Route: 058
     Dates: start: 20050901, end: 20060331
  3. BYETTA [Suspect]
     Indication: DIABETES MELLITUS NON-INSULIN-DEPENDENT
     Dosage: SEE IMAGE
     Route: 058
     Dates: start: 20060403, end: 20060404
  4. AMARYL [Concomitant]
  5. AMARYL [Concomitant]
  6. AMARYL [Concomitant]
  7. AMARYL [Concomitant]
  8. UNKNOWN MEDICATION FOR MENIERES [Concomitant]
  9. VAGIFEM [Concomitant]
  10. VITAMIN E [Concomitant]
  11. MULTIVITAMINS, PLAIN [Concomitant]
  12. ZETIA [Concomitant]
  13. CALCIUM [Concomitant]

REACTIONS (5)
  - ARRHYTHMIA [None]
  - GASTROENTERITIS VIRAL [None]
  - NAUSEA [None]
  - PAIN [None]
  - VOMITING [None]
